FAERS Safety Report 16697636 (Version 1)
Quarter: 2019Q3

REPORT INFORMATION
  Report Type: Spontaneous
  Country: DE (occurrence: DE)
  Receive Date: 20190813
  Receipt Date: 20190813
  Transmission Date: 20191004
  Serious: Yes (Hospitalization, Other)
  Sender: FDA-Public Use
  Company Number: PHHY2019DE182795

PATIENT
  Age: 69 Year
  Sex: Female
  Weight: 87 kg

DRUGS (7)
  1. PERTUZUMAB. [Suspect]
     Active Substance: PERTUZUMAB
     Dosage: 420 MG, 21D
     Route: 042
     Dates: start: 20180220
  2. TAXOTERE [Suspect]
     Active Substance: DOCETAXEL
     Indication: BREAST CANCER
     Dosage: 75 MG/M2, 21D (TIME DIFFERENCE BETWEEN LAST INTAKE AND FIRST SYMPTOM IN HOURS IS 192 HOURS)
     Route: 042
     Dates: start: 20180126
  3. AMLODIPIN [Concomitant]
     Active Substance: AMLODIPINE BESYLATE
     Indication: HYPERTENSION
     Dosage: 5 MG, QD
     Route: 048
  4. TRASTUZUMAB. [Suspect]
     Active Substance: TRASTUZUMAB
     Dosage: 6 MG/KG, 21D (TOTAL DOSE (522 MG))
     Route: 042
     Dates: start: 20180220
  5. TRASTUZUMAB. [Suspect]
     Active Substance: TRASTUZUMAB
     Indication: BREAST CANCER
     Dosage: 6 MG/KG, 21D (TOTAL DOSE (522 MG))
     Route: 042
     Dates: start: 20180126
  6. FEMARA [Suspect]
     Active Substance: LETROZOLE
     Indication: BREAST CANCER
     Dosage: 2.5 MG, UNK
     Route: 048
  7. PERTUZUMAB. [Suspect]
     Active Substance: PERTUZUMAB
     Indication: BREAST CANCER
     Dosage: 420 MG, 21D
     Route: 042
     Dates: start: 20180126

REACTIONS (5)
  - Diarrhoea [Recovered/Resolved]
  - Venous thrombosis limb [Recovered/Resolved]
  - Tooth development disorder [Unknown]
  - General physical health deterioration [Recovered/Resolved]
  - Fatigue [Recovered/Resolved]

NARRATIVE: CASE EVENT DATE: 20180126
